FAERS Safety Report 21943158 (Version 1)
Quarter: 2023Q1

REPORT INFORMATION
  Report Type: Report from Study
  Country: US (occurrence: US)
  Receive Date: 20230202
  Receipt Date: 20230202
  Transmission Date: 20230418
  Serious: Yes (Other)
  Sender: FDA-Public Use
  Company Number: US-UCBSA-2023004878

PATIENT
  Sex: Male

DRUGS (1)
  1. CERTOLIZUMAB PEGOL [Suspect]
     Active Substance: CERTOLIZUMAB PEGOL
     Indication: Rheumatoid arthritis
     Dosage: UNK, EV 4 WEEKS
     Dates: start: 2022

REACTIONS (3)
  - Pancreatic failure [Not Recovered/Not Resolved]
  - Onychomadesis [Not Recovered/Not Resolved]
  - Constipation [Not Recovered/Not Resolved]
